FAERS Safety Report 4651549-8 (Version None)
Quarter: 2005Q2

REPORT INFORMATION
  Report Type: 
  Country: None (occurrence: None)
  Receive Date: 20050502
  Receipt Date: 20050419
  Transmission Date: 20051028
  Serious: Yes (Hospitalization, Other)
  Sender: FDA-Public Use
  Company Number: 2005062526

PATIENT
  Age: 55 Year
  Sex: Male

DRUGS (7)
  1. CELEBREX [Suspect]
     Indication: MYOSITIS
     Dosage: ORAL
     Route: 048
  2. WARFARIN SODIUM [Concomitant]
  3. PRAVASTATIN SODIUM [Concomitant]
  4. POTASSIUM ACETATE [Concomitant]
  5. BUMETANIDE [Concomitant]
  6. RAMIPRIL [Concomitant]
  7. ATENOLOL [Concomitant]

REACTIONS (6)
  - ATRIAL FIBRILLATION [None]
  - DIABETES MELLITUS [None]
  - FUNGAL INFECTION [None]
  - LOCALISED INFECTION [None]
  - POST PROCEDURAL COMPLICATION [None]
  - PROSTATE CANCER [None]
